FAERS Safety Report 24727907 (Version 1)
Quarter: 2024Q4

REPORT INFORMATION
  Report Type: Spontaneous
  Country: US (occurrence: None)
  Receive Date: 20241212
  Receipt Date: 20241212
  Transmission Date: 20250115
  Serious: Yes (Other)
  Sender: Public
  Company Number: None

PATIENT
  Age: 46 Year
  Sex: Female
  Weight: 101.25 kg

DRUGS (6)
  1. DERMABOND [Suspect]
     Active Substance: OCRYLATE
     Indication: Rash
     Dates: start: 20241031, end: 20241107
  2. CELECOXIB [Suspect]
     Active Substance: CELECOXIB
  3. OXYCODONE [Suspect]
     Active Substance: OXYCODONE
  4. PREDNISONE [Concomitant]
     Active Substance: PREDNISONE
  5. PREVACID [Suspect]
     Active Substance: LANSOPRAZOLE
  6. XYZAL [Concomitant]
     Active Substance: LEVOCETIRIZINE DIHYDROCHLORIDE

REACTIONS (5)
  - Anaphylactic reaction [None]
  - Incision site pruritus [None]
  - Urticaria [None]
  - Chest pain [None]
  - Dyspnoea [None]
